FAERS Safety Report 11483085 (Version 2)
Quarter: 2015Q3

REPORT INFORMATION
  Report Type: Spontaneous
  Country: US (occurrence: US)
  Receive Date: 20150903
  Receipt Date: 20150903
  Transmission Date: 20151125
  Serious: No
  Sender: FDA-Public Use
  Company Number: US-ELI_LILLY_AND_COMPANY-US201203002955

PATIENT
  Sex: Female

DRUGS (23)
  1. PREVACID [Concomitant]
     Active Substance: LANSOPRAZOLE
     Dosage: 15 MG, QD
  2. ACYCLOVIR                          /00587301/ [Concomitant]
     Active Substance: ACYCLOVIR
     Dosage: 5 DF, PRN
  3. ADVAIR HFA [Concomitant]
     Active Substance: FLUTICASONE PROPIONATE\SALMETEROL XINAFOATE
     Dosage: 1 DF, BID
  4. CYMBALTA [Suspect]
     Active Substance: DULOXETINE HYDROCHLORIDE
     Dosage: 60 MG, UNK
  5. DETROL LA [Concomitant]
     Active Substance: TOLTERODINE TARTRATE
     Dosage: 4 MG, QD
  6. FOLIC ACID. [Concomitant]
     Active Substance: FOLIC ACID
     Dosage: 2 DF, UNKNOWN
  7. IRON [Concomitant]
     Active Substance: IRON
     Dosage: 3 DF, QD
  8. ASACOL                                  /USA/ [Concomitant]
     Dosage: 12 DF, QD
  9. LISINOPRIL                              /USA/ [Concomitant]
     Active Substance: LISINOPRIL
     Dosage: 20 MG, QD
  10. METOLAZONE. [Concomitant]
     Active Substance: METOLAZONE
     Dosage: 2.5 MG, QD
  11. LIPOFLAVONOID [Concomitant]
     Active Substance: UNSPECIFIED INGREDIENT
     Dosage: UNK, TID
  12. CYMBALTA [Suspect]
     Active Substance: DULOXETINE HYDROCHLORIDE
     Indication: DEPRESSION
     Dosage: 30 MG, QD
  13. CALCIUM [Concomitant]
     Active Substance: CALCIUM
     Dosage: 2 DF, QD
  14. REMICADE [Concomitant]
     Active Substance: INFLIXIMAB
     Dosage: UNK, OTHER
  15. ASPIRIN                                 /USA/ [Concomitant]
     Dosage: 2 DF, QD
  16. ECONAZOLE NITRATE. [Concomitant]
     Active Substance: ECONAZOLE NITRATE
     Indication: RASH
     Dosage: UNK, OTHER
  17. HYDROQUINONE. [Concomitant]
     Active Substance: HYDROQUINONE
     Dosage: UNK, OTHER
  18. BIOTIN [Concomitant]
     Active Substance: BIOTIN
     Dosage: 5000 UG, QD
  19. D3 [Concomitant]
     Active Substance: 25-HYDROXYCHOLECALCIFEROL, 5-TRANS-
     Dosage: 1000 MG, QD
  20. PREMARIN [Concomitant]
     Active Substance: ESTROGENS, CONJUGATED
     Dosage: 1 G, QD
  21. HYDROCHLOROTHIAZIDE. [Concomitant]
     Active Substance: HYDROCHLOROTHIAZIDE
     Dosage: 25 MG, QD
  22. NASONEX [Concomitant]
     Active Substance: MOMETASONE FUROATE
     Dosage: 2 DF, QD
  23. BUSPIRONE [Concomitant]
     Active Substance: BUSPIRONE HYDROCHLORIDE
     Dosage: 4 DF, QD

REACTIONS (7)
  - Depersonalisation [Unknown]
  - Pain in extremity [Unknown]
  - Headache [Unknown]
  - Sciatica [Unknown]
  - Hypoaesthesia [Unknown]
  - Decreased activity [Unknown]
  - Nausea [Unknown]
